FAERS Safety Report 16454825 (Version 1)
Quarter: 2019Q2

REPORT INFORMATION
  Report Type: Spontaneous
  Country: US (occurrence: US)
  Receive Date: 20190619
  Receipt Date: 20190619
  Transmission Date: 20190711
  Serious: No
  Sender: FDA-Public Use
  Company Number: US-ROCHE-2180026

PATIENT
  Sex: Female

DRUGS (1)
  1. ACTEMRA [Suspect]
     Active Substance: TOCILIZUMAB
     Indication: RHEUMATOID ARTHRITIS
     Dosage: 162 MG SC EVERY 2 WEEKS ;ONGOING: NO
     Route: 058
     Dates: end: 20180628

REACTIONS (2)
  - Intercepted product storage error [Unknown]
  - Fatigue [Unknown]
